APPROVED DRUG PRODUCT: XOSPATA
Active Ingredient: GILTERITINIB FUMARATE
Strength: EQ 40MG BASE
Dosage Form/Route: TABLET;ORAL
Application: N211349 | Product #001
Applicant: ASTELLAS PHARMA US INC
Approved: Nov 28, 2018 | RLD: Yes | RS: Yes | Type: RX

PATENTS:
Patent 9487491 | Expires: Jul 28, 2030
Patent 11938133 | Expires: Jul 1, 2036
Patent 11944620 | Expires: Jul 1, 2036
Patent 11938130 | Expires: Jul 1, 2036
Patent 10786500 | Expires: Jul 1, 2036
Patent 8969336 | Expires: Nov 28, 2032
Patent 11938131 | Expires: Jul 1, 2036
Patent 11938132 | Expires: Jul 1, 2036